FAERS Safety Report 5223630-6 (Version None)
Quarter: 2007Q1

REPORT INFORMATION
  Report Type: 
  Country: None (occurrence: None)
  Receive Date: 20070130
  Receipt Date: 20070119
  Transmission Date: 20070707
  Serious: Yes (Other)
  Sender: FDA-Public Use
  Company Number: US-KINGPHARMUSA00001-K200700066

PATIENT

DRUGS (6)
  1. ALTACE [Suspect]
     Indication: CARDIAC FAILURE
     Dosage: 5 MG, QD
     Route: 048
     Dates: start: 20061222, end: 20061223
  2. ATORVASTATIN CALCIUM [Concomitant]
     Dosage: 10 MG, UNK
     Route: 048
  3. CARVEDILOL [Concomitant]
     Dosage: 6.25 MG, UNK
     Route: 048
  4. DIGOXIN [Concomitant]
     Dosage: 62.5 MG, UNK
     Route: 048
  5. FINASTERIDE [Concomitant]
     Dosage: 5 MG, UNK
     Route: 048
  6. ISOSORBIDE MONONITRATE [Concomitant]
     Dosage: 40 MG, UNK
     Route: 048

REACTIONS (1)
  - CHEST PAIN [None]
